FAERS Safety Report 22385803 (Version 1)
Quarter: 2023Q2

REPORT INFORMATION
  Report Type: Spontaneous
  Country: US (occurrence: None)
  Receive Date: 20230530
  Receipt Date: 20230530
  Transmission Date: 20230722
  Serious: Yes (Hospitalization)
  Sender: FDA-Public Use
  Company Number: None

PATIENT
  Sex: Female

DRUGS (3)
  1. OPSUMIT [Suspect]
     Active Substance: MACITENTAN
     Indication: Pulmonary arterial hypertension
     Dosage: FREQUENCY : DAILY;?
     Route: 048
     Dates: start: 201502
  2. SILDENAFIL [Suspect]
     Active Substance: SILDENAFIL
  3. TYVASO [Suspect]
     Active Substance: TREPROSTINIL

REACTIONS (1)
  - Oxygen saturation decreased [None]
